FAERS Safety Report 23228941 (Version 1)
Quarter: 2023Q4

REPORT INFORMATION
  Report Type: Spontaneous
  Country: US (occurrence: None)
  Receive Date: 20231126
  Receipt Date: 20231126
  Transmission Date: 20240110
  Serious: No
  Sender: FDA-Public Use
  Company Number: US-ROCHE-3257905

PATIENT
  Age: 52 Year
  Sex: Female
  Weight: 82.628 kg

DRUGS (3)
  1. HERCEPTIN [Suspect]
     Active Substance: TRASTUZUMAB
     Indication: Breast cancer metastatic
     Route: 042
     Dates: start: 20220518
  2. PERJETA [Suspect]
     Active Substance: PERTUZUMAB
     Indication: Breast cancer metastatic
     Route: 042
     Dates: start: 20220518
  3. TAXOL [Concomitant]
     Active Substance: PACLITAXEL
     Indication: Breast cancer metastatic

REACTIONS (1)
  - Ejection fraction [Unknown]

NARRATIVE: CASE EVENT DATE: 20230101
